FAERS Safety Report 17951678 (Version 1)
Quarter: 2020Q2

REPORT INFORMATION
  Report Type: Report from Study
  Country: US (occurrence: US)
  Receive Date: 20200626
  Receipt Date: 20200626
  Transmission Date: 20200714
  Serious: Yes (Other)
  Sender: FDA-Public Use
  Company Number: US-BAYER-2020-092333

PATIENT
  Age: 68 Year
  Sex: Male

DRUGS (14)
  1. ONDANSETRON [Concomitant]
     Active Substance: ONDANSETRON
     Indication: VOMITING
  2. ZINC. [Concomitant]
     Active Substance: ZINC
     Dosage: DAILY
     Route: 048
  3. XOFIGO [Suspect]
     Active Substance: RADIUM RA-223 DICHLORIDE
     Indication: HORMONE-REFRACTORY PROSTATE CANCER
     Dosage: 82.10 ?CI, Q4WK
     Route: 042
     Dates: start: 20200218, end: 20200218
  4. ACETAMINOPHEN;HYDROCODONE [Concomitant]
     Active Substance: ACETAMINOPHEN\HYDROCODONE
     Indication: PAIN
     Dosage: 120 MG EVERY 6 HOURS PRN
     Route: 048
     Dates: start: 20200404
  5. XOFIGO [Suspect]
     Active Substance: RADIUM RA-223 DICHLORIDE
     Indication: HORMONE-REFRACTORY PROSTATE CANCER
     Dosage: 83 ?CI, Q4WK
     Route: 042
     Dates: start: 20200429, end: 20200429
  6. TURMERIC [CURCUMA LONGA] [Concomitant]
     Active Substance: HERBALS\TURMERIC
     Indication: PAIN
     Dosage: DAILY
     Route: 048
  7. VITAMIN D [VITAMIN D NOS] [Concomitant]
     Active Substance: VITAMIN D NOS
     Route: 048
  8. XOFIGO [Suspect]
     Active Substance: RADIUM RA-223 DICHLORIDE
     Indication: HORMONE-REFRACTORY PROSTATE CANCER
     Dosage: 87 ?CI, Q4WK
     Route: 042
     Dates: start: 20200601, end: 20200601
  9. ONDANSETRON [Concomitant]
     Active Substance: ONDANSETRON
     Indication: NAUSEA
     Dosage: 8 MG EVERY 8 HOURS.PRN
     Route: 048
     Dates: start: 20200127
  10. ERGOCALCIFEROL. [Concomitant]
     Active Substance: ERGOCALCIFEROL
     Dosage: DAILY
     Route: 048
  11. NAPROXEN. [Concomitant]
     Active Substance: NAPROXEN
     Dosage: 250 MG, BID WITH MEALS
     Route: 048
     Dates: start: 20200116
  12. PERCOCET [Concomitant]
     Active Substance: ACETAMINOPHEN\OXYCODONE HYDROCHLORIDE
     Indication: PAIN
     Dosage: 1 DF, BID/ PRN
     Route: 048
     Dates: start: 20200616
  13. TRAMADOL. [Concomitant]
     Active Substance: TRAMADOL
     Indication: PAIN
     Dosage: 120 MG, BID, PRN
     Route: 048
     Dates: start: 20200309
  14. XOFIGO [Suspect]
     Active Substance: RADIUM RA-223 DICHLORIDE
     Indication: HORMONE-REFRACTORY PROSTATE CANCER
     Dosage: 83 ?CI, Q4WK
     Route: 042
     Dates: start: 20200318, end: 20200318

REACTIONS (9)
  - Red blood cell count [None]
  - Urinary tract infection [None]
  - Haemoglobin decreased [None]
  - Lymphocyte count decreased [None]
  - Anaemia [Unknown]
  - Blood alkaline phosphatase increased [None]
  - Pain [None]
  - Haematocrit decreased [None]
  - Neutrophil count increased [None]

NARRATIVE: CASE EVENT DATE: 20200422
